FAERS Safety Report 5434088-6 (Version None)
Quarter: 2007Q3

REPORT INFORMATION
  Report Type: 
  Country: None (occurrence: None)
  Receive Date: 20070831
  Receipt Date: 20070719
  Transmission Date: 20080115
  Serious: No
  Sender: FDA-Public Use
  Company Number: A0664701A

PATIENT
  Age: 65 Year
  Sex: Female

DRUGS (3)
  1. ALLI [Suspect]
     Dates: start: 20070614, end: 20070701
  2. TIKOSYN [Concomitant]
  3. ATENOLOL [Concomitant]
     Indication: HEART RATE

REACTIONS (4)
  - ABDOMINAL DISCOMFORT [None]
  - CHILLS [None]
  - DIARRHOEA [None]
  - MALAISE [None]
